FAERS Safety Report 18726426 (Version 1)
Quarter: 2021Q1

REPORT INFORMATION
  Report Type: Spontaneous
  Country: PT (occurrence: PT)
  Receive Date: 20210111
  Receipt Date: 20210111
  Transmission Date: 20210419
  Serious: Yes (Other)
  Sender: FDA-Public Use
  Company Number: PT-ALLERGAN-2100928US

PATIENT
  Sex: Female

DRUGS (3)
  1. PALIPERIDONE. [Suspect]
     Active Substance: PALIPERIDONE
     Indication: DELUSION OF PARASITOSIS
  2. RISPERIDONE. [Suspect]
     Active Substance: RISPERIDONE
     Indication: DELUSION OF PARASITOSIS
  3. CARIPRAZINE HCL ? BP [Suspect]
     Active Substance: CARIPRAZINE HYDROCHLORIDE
     Indication: DELUSION OF PARASITOSIS

REACTIONS (7)
  - Off label use [Unknown]
  - Somnolence [Unknown]
  - Hyperprolactinaemia [Unknown]
  - Delusion [Recovering/Resolving]
  - Anosognosia [Recovering/Resolving]
  - Treatment noncompliance [Unknown]
  - Agitation [Unknown]
